FAERS Safety Report 8311201 (Version 4)
Quarter: 2016Q3

REPORT INFORMATION
  Report Type: Spontaneous
  Country: JP (occurrence: JP)
  Receive Date: 20111227
  Receipt Date: 20160725
  Transmission Date: 20161109
  Serious: Yes (Death, Other)
  Sender: FDA-Public Use
  Company Number: JP-BAYER-2011-053260

PATIENT
  Age: 77 Year
  Sex: Female

DRUGS (2)
  1. NEXAVAR [Suspect]
     Active Substance: SORAFENIB
     Indication: RENAL CELL CARCINOMA
     Dosage: DAILY DOSE 400 MG
     Route: 048
     Dates: start: 20110523, end: 201106
  2. NEXAVAR [Suspect]
     Active Substance: SORAFENIB
     Indication: RENAL CELL CARCINOMA
     Dosage: DAILY DOSE 600 MG
     Route: 048
     Dates: start: 201106, end: 201106

REACTIONS (9)
  - Pneumatosis intestinalis [Fatal]
  - Portal venous gas [Unknown]
  - Malaise [None]
  - Renal impairment [None]
  - Vomiting [None]
  - Intestinal ischaemia [Fatal]
  - Intestinal haemorrhage [Fatal]
  - Abdominal pain [Unknown]
  - Thrombocytopenia [None]

NARRATIVE: CASE EVENT DATE: 201106
